FAERS Safety Report 11616645 (Version 1)
Quarter: 2015Q4

REPORT INFORMATION
  Report Type: Spontaneous
  Country: IT (occurrence: IT)
  Receive Date: 20151009
  Receipt Date: 20151009
  Transmission Date: 20160304
  Serious: Yes (Other)
  Sender: FDA-Public Use
  Company Number: PHHY2015IT120341

PATIENT
  Age: 76 Year
  Sex: Female
  Weight: 52 kg

DRUGS (3)
  1. OXALIPLATIN. [Suspect]
     Active Substance: OXALIPLATIN
     Indication: ADENOCARCINOMA OF COLON
     Dosage: 135 MG, ONCE/SINGLE
     Route: 042
     Dates: start: 20140819, end: 20140911
  2. AVASTIN [Suspect]
     Active Substance: BEVACIZUMAB
     Indication: ADENOCARCINOMA OF COLON
     Dosage: 260 MG, ONCE/SINGLE
     Route: 042
     Dates: start: 20140911, end: 20140911
  3. 5-FLUOROURACIL [Suspect]
     Active Substance: FLUOROURACIL
     Indication: ADENOCARCINOMA OF COLON
     Dosage: 2560 MG, ONCE/SINGLE
     Route: 042
     Dates: start: 20140819, end: 20140911

REACTIONS (1)
  - Electrocardiogram ST segment depression [Unknown]

NARRATIVE: CASE EVENT DATE: 20140919
